FAERS Safety Report 7801777-5 (Version None)
Quarter: 2011Q4

REPORT INFORMATION
  Report Type: 
  Country: None (occurrence: None)
  Receive Date: 20111005
  Receipt Date: 20110926
  Transmission Date: 20120403
  Serious: Yes (Life-Threatening)
  Sender: FDA-Public Use
  Company Number: 2011MA014544

PATIENT
  Age: 65 Year
  Sex: Female

DRUGS (1)
  1. METFORMIN HYDROCHLORIDE [Suspect]
     Indication: TYPE 2 DIABETES MELLITUS
     Dosage: 1000 MG;TID;PO
     Route: 048
     Dates: end: 20110907

REACTIONS (9)
  - LACTIC ACIDOSIS [None]
  - DIALYSIS [None]
  - GENERAL PHYSICAL HEALTH DETERIORATION [None]
  - CARDIAC ARREST [None]
  - CONDITION AGGRAVATED [None]
  - GASTROENTERITIS [None]
  - BRADYCARDIA [None]
  - HYPERTENSION [None]
  - RENAL FAILURE CHRONIC [None]
